FAERS Safety Report 21553848 (Version 2)
Quarter: 2022Q4

REPORT INFORMATION
  Report Type: Spontaneous
  Country: US (occurrence: US)
  Receive Date: 20221104
  Receipt Date: 20221214
  Transmission Date: 20230112
  Serious: Yes (Other)
  Sender: FDA-Public Use
  Company Number: US-GILEAD-2022-0603725

PATIENT
  Age: 68 Year
  Sex: Male
  Weight: 84.354 kg

DRUGS (4)
  1. EPCLUSA [Suspect]
     Active Substance: SOFOSBUVIR\VELPATASVIR
     Indication: Chronic hepatitis C
     Dosage: UNK
     Route: 065
     Dates: start: 202210
  2. ATORVASTATIN [Concomitant]
     Active Substance: ATORVASTATIN
     Indication: Blood cholesterol
     Dosage: 80MG/ORAL/ONCE PER DAY
     Route: 048
     Dates: start: 20221208
  3. GLIPIZIDE XL [Concomitant]
     Active Substance: GLIPIZIDE
     Indication: Type 2 diabetes mellitus
     Dosage: 5MG/ORAL/ONCE PER DAY
     Route: 048
     Dates: start: 20221208
  4. NIFEDIPINE EXTENDED RELEASE TABLETS (III) [Concomitant]
     Indication: Hypertension
     Dosage: 90 MG, QD
     Route: 048
     Dates: start: 20221208

REACTIONS (2)
  - Suicidal ideation [Not Recovered/Not Resolved]
  - Paranoia [Not Recovered/Not Resolved]

NARRATIVE: CASE EVENT DATE: 20221024
